FAERS Safety Report 7175991-9 (Version None)
Quarter: 2010Q4

REPORT INFORMATION
  Report Type: 
  Country: None (occurrence: None)
  Receive Date: 20101220
  Receipt Date: 20101210
  Transmission Date: 20110411
  Serious: No
  Sender: FDA-Public Use
  Company Number: US-BIOGENIDEC-2010BI014666

PATIENT
  Sex: Female

DRUGS (3)
  1. TYSABRI [Suspect]
     Indication: MULTIPLE SCLEROSIS
     Route: 042
     Dates: start: 20061001
  2. NEURONTIN [Concomitant]
     Indication: PAIN
  3. FENTANYL [Concomitant]
     Indication: PAIN

REACTIONS (16)
  - AMNESIA [None]
  - ANXIETY [None]
  - ARTHRITIS [None]
  - ASTHENIA [None]
  - BACK DISORDER [None]
  - BALANCE DISORDER [None]
  - CREPITATIONS [None]
  - FALL [None]
  - FATIGUE [None]
  - MUSCLE SPASMS [None]
  - POOR QUALITY SLEEP [None]
  - POSTURE ABNORMAL [None]
  - SLEEP DISORDER [None]
  - STRESS [None]
  - VEIN DISORDER [None]
  - VISION BLURRED [None]
